FAERS Safety Report 24235935 (Version 2)
Quarter: 2024Q3

REPORT INFORMATION
  Report Type: Spontaneous
  Country: DZ (occurrence: DZ)
  Receive Date: 20240822
  Receipt Date: 20240904
  Transmission Date: 20241017
  Serious: Yes (Other)
  Sender: NOVO NORDISK
  Company Number: DZ-NOVOPROD-1250015

PATIENT
  Age: 57 Year
  Sex: Female
  Weight: 110 kg

DRUGS (10)
  1. NOVORAPID [Suspect]
     Active Substance: INSULIN ASPART
     Indication: Type 2 diabetes mellitus
     Dosage: 32 IU, TID
     Route: 058
     Dates: start: 20120101
  2. LANTUS [Concomitant]
     Active Substance: INSULIN GLARGINE
     Indication: Type 2 diabetes mellitus
     Dosage: 30 IU, QD
  3. GLUCOPHAGE [Concomitant]
     Active Substance: METFORMIN HYDROCHLORIDE
     Indication: Product used for unknown indication
     Dosage: 1000 MG, TID
  4. HYZAAR [Concomitant]
     Active Substance: HYDROCHLOROTHIAZIDE\LOSARTAN POTASSIUM
     Indication: Product used for unknown indication
     Dosage: 50MG/12.5MG ONCE A DAY.
  5. BIPROTENS [Concomitant]
     Indication: Product used for unknown indication
     Dosage: 5 MG, QD
  6. CRESTOR [Concomitant]
     Active Substance: ROSUVASTATIN CALCIUM
     Indication: Product used for unknown indication
     Dosage: 20 MG, QD
  7. METAZID [Concomitant]
     Indication: Product used for unknown indication
     Dosage: 10 MG, QD
  8. VOLTUM [DICLOFENAC SODIUM] [Concomitant]
     Indication: Carpal tunnel syndrome
     Dosage: 25 MG, QD
  9. KETOTIFEN FUMARATE [Concomitant]
     Active Substance: KETOTIFEN FUMARATE
     Indication: Seasonal allergy
     Dosage: 0.25MG/ML EYE DROPS
  10. ASPIRIN [Concomitant]
     Active Substance: ASPIRIN
     Indication: Product used for unknown indication
     Dosage: 100 MG, QD

REACTIONS (4)
  - Angina unstable [Unknown]
  - Retinal vein occlusion [Unknown]
  - Hyperglycaemia [Not Recovered/Not Resolved]
  - Hypoglycaemia [Not Recovered/Not Resolved]
